FAERS Safety Report 20949915 (Version 1)
Quarter: 2022Q2

REPORT INFORMATION
  Report Type: Spontaneous
  Country: US (occurrence: US)
  Receive Date: 20220613
  Receipt Date: 20220613
  Transmission Date: 20220721
  Serious: No
  Sender: FDA-Public Use
  Company Number: US-STRIDES ARCOLAB LIMITED-2022SP002461

PATIENT
  Age: 26 Year
  Sex: Female

DRUGS (4)
  1. HYDROCORTISONE [Suspect]
     Active Substance: HYDROCORTISONE
     Indication: Adrenal haemorrhage
     Dosage: 50 MILLIGRAM, EVERY 8 HOURS
     Route: 042
  2. HYDROCORTISONE [Suspect]
     Active Substance: HYDROCORTISONE
     Dosage: 20 MILLIGRAM, EVERY MORNING
     Route: 048
  3. HYDROCORTISONE [Suspect]
     Active Substance: HYDROCORTISONE
     Dosage: 10 MILLIGRAM, QD (EVERY NOON)
     Route: 048
  4. HYDROCORTISONE [Suspect]
     Active Substance: HYDROCORTISONE
     Dosage: 10 MILLIGRAM (EVENING)
     Route: 048

REACTIONS (1)
  - Maternal exposure during pregnancy [Unknown]
